FAERS Safety Report 7875217-4 (Version None)
Quarter: 2011Q4

REPORT INFORMATION
  Report Type: 
  Country: None (occurrence: None)
  Receive Date: 20111031
  Receipt Date: 20111021
  Transmission Date: 20120403
  Serious: Yes (Other)
  Sender: FDA-Public Use
  Company Number: US-ASTELLAS-2011US006706

PATIENT
  Sex: Male
  Weight: 115 kg

DRUGS (8)
  1. AMEVIVE [Suspect]
     Indication: RENAL TRANSPLANT
     Dosage: 7.5 MG, POD 0 + 2
     Route: 042
     Dates: start: 20101029
  2. LIPITOR [Concomitant]
     Indication: PRODUCT USED FOR UNKNOWN INDICATION
     Dosage: 20 MG, UID/QD
     Route: 065
  3. NORVASC [Concomitant]
     Indication: PRODUCT USED FOR UNKNOWN INDICATION
     Dosage: 5 MG, UID/QD
     Route: 065
  4. AMEVIVE [Suspect]
     Dosage: 15 MG, WEEKLY X 12 WKS
     Route: 058
  5. ZETIA [Concomitant]
     Indication: PRODUCT USED FOR UNKNOWN INDICATION
     Dosage: 5 MG, UID/QD
     Route: 065
  6. MULTI-VITAMIN [Concomitant]
     Indication: PRODUCT USED FOR UNKNOWN INDICATION
     Dosage: 1 DF, UID/QD
     Route: 065
  7. MYFORTIC [Concomitant]
     Indication: PRODUCT USED FOR UNKNOWN INDICATION
     Dosage: 360 MG, BID
     Route: 065
  8. AMEVIVE [Suspect]
     Dosage: 15 MG, MONTHLY
     Route: 058
     Dates: end: 20110223

REACTIONS (2)
  - OFF LABEL USE [None]
  - KIDNEY TRANSPLANT REJECTION [None]
